FAERS Safety Report 7536938-6 (Version None)
Quarter: 2011Q2

REPORT INFORMATION
  Report Type: 
  Country: None (occurrence: None)
  Receive Date: 20110609
  Receipt Date: 20110526
  Transmission Date: 20111010
  Serious: Yes (Other)
  Sender: FDA-Public Use
  Company Number: US-JNJFOC-20110405951

PATIENT
  Sex: Female
  Weight: 58.33 kg

DRUGS (3)
  1. REMICADE [Suspect]
     Indication: PSORIATIC ARTHROPATHY
     Route: 042
  2. REMICADE [Suspect]
     Route: 042
     Dates: start: 20110418
  3. ETODOLAC [Concomitant]
     Indication: PSORIATIC ARTHROPATHY
     Route: 048

REACTIONS (5)
  - ROAD TRAFFIC ACCIDENT [None]
  - MUSCULOSKELETAL DISCOMFORT [None]
  - MUSCULOSKELETAL STIFFNESS [None]
  - CONDITION AGGRAVATED [None]
  - PAIN IN EXTREMITY [None]
